FAERS Safety Report 5656920-3 (Version None)
Quarter: 2008Q1

REPORT INFORMATION
  Report Type: 
  Country: None (occurrence: None)
  Receive Date: 20080219
  Receipt Date: 20071026
  Transmission Date: 20080703
  Serious: No
  Sender: FDA-Public Use
  Company Number: WAES 0710USA05815

PATIENT
  Age: 83 Year
  Sex: Female

DRUGS (5)
  1. JANUVIA [Suspect]
     Indication: BLOOD GLUCOSE
     Dosage: PO
     Route: 048
     Dates: start: 20070926
  2. BUMEX [Concomitant]
  3. LOTREL [Concomitant]
  4. GLYBURIDE [Concomitant]
  5. METFORMIN HCL [Concomitant]

REACTIONS (1)
  - THROMBOCYTOPENIA [None]
